FAERS Safety Report 7009847-9 (Version None)
Quarter: 2010Q3

REPORT INFORMATION
  Report Type: 
  Country: None (occurrence: None)
  Receive Date: 20100923
  Receipt Date: 20100913
  Transmission Date: 20110219
  Serious: Yes (Other)
  Sender: FDA-Public Use
  Company Number: US-JNJFOC-20100904537

PATIENT
  Sex: Female
  Weight: 77.11 kg

DRUGS (9)
  1. SIMPONI [Suspect]
     Indication: ANKYLOSING SPONDYLITIS
     Route: 058
  2. ENDOMYCIN [Concomitant]
  3. GABAPENTIN [Concomitant]
  4. MIRAPEX [Concomitant]
  5. PRAZOSIN HCL [Concomitant]
  6. LAMOTRIGINE [Concomitant]
  7. FENTANYL-75 [Concomitant]
  8. BUPROPION HCL [Concomitant]
  9. SEROQUEL [Concomitant]

REACTIONS (5)
  - BRONCHITIS [None]
  - DEVICE FAILURE [None]
  - FOOT FRACTURE [None]
  - INAPPROPRIATE SCHEDULE OF DRUG ADMINISTRATION [None]
  - PNEUMONIA [None]
